FAERS Safety Report 8974666 (Version 1)
Quarter: 2012Q4

REPORT INFORMATION
  Report Type: 
  Country: US (occurrence: US)
  Receive Date: 20121219
  Receipt Date: 20121219
  Transmission Date: 20130627
  Serious: No
  Sender: FDA-Public Use
  Company Number: US-AMGEN-USASP2012056800

PATIENT
  Age: 78 Year
  Sex: Female

DRUGS (5)
  1. PROLIA [Suspect]
     Indication: OSTEOPOROSIS POSTMENOPAUSAL
     Dosage: UNK UNK, q6mo
     Dates: start: 20120731
  2. LORAZEPAM [Concomitant]
  3. EXTRA STRENGTH TYLENOL BACK PAIN [Concomitant]
  4. VITAMINS [Concomitant]
  5. FISH OIL [Concomitant]

REACTIONS (3)
  - Lymphoedema [Not Recovered/Not Resolved]
  - Pain [Not Recovered/Not Resolved]
  - Swelling [Not Recovered/Not Resolved]
